FAERS Safety Report 7905492-9 (Version None)
Quarter: 2011Q4

REPORT INFORMATION
  Report Type: 
  Country: None (occurrence: None)
  Receive Date: 20111110
  Receipt Date: 20111107
  Transmission Date: 20120403
  Serious: No
  Sender: FDA-Public Use
  Company Number: US-BIOGENIDEC-2010BI009300

PATIENT
  Age: 52 Year
  Sex: Female

DRUGS (1)
  1. TYSABRI [Suspect]
     Indication: MULTIPLE SCLEROSIS
     Route: 042
     Dates: start: 20090821

REACTIONS (9)
  - STRESS [None]
  - GASTROENTERITIS VIRAL [None]
  - LIVEDO RETICULARIS [None]
  - INSOMNIA [None]
  - OEDEMA PERIPHERAL [None]
  - DEREALISATION [None]
  - JOINT SWELLING [None]
  - COGNITIVE DISORDER [None]
  - FATIGUE [None]
